FAERS Safety Report 4830229-X (Version None)
Quarter: 2005Q4

REPORT INFORMATION
  Report Type: 
  Country: None (occurrence: None)
  Receive Date: 20051117
  Receipt Date: 20050908
  Transmission Date: 20060501
  Serious: Yes (Hospitalization)
  Sender: FDA-Public Use
  Company Number: US-GLAXOSMITHKLINE-A0573485A

PATIENT
  Age: 52 Year
  Sex: Male

DRUGS (17)
  1. WELLBUTRIN SR [Suspect]
     Indication: DRUG USE FOR UNKNOWN INDICATION
     Dosage: 150MG PER DAY
     Route: 048
  2. CISPLATIN [Suspect]
     Indication: LUNG NEOPLASM MALIGNANT
     Dates: start: 20050101
  3. FLAGYL [Concomitant]
  4. LEVAQUIN [Concomitant]
  5. ZYVOX [Concomitant]
  6. PREDNISONE [Concomitant]
  7. COUMADIN [Concomitant]
  8. LEXAPRO [Concomitant]
  9. MAGNESIUM [Concomitant]
  10. INSULIN [Concomitant]
  11. PROTONIX [Concomitant]
  12. LOTENSIN [Concomitant]
  13. NORVASC [Concomitant]
  14. COMBIVENT [Concomitant]
  15. NITROGLYCERIN [Concomitant]
  16. UNSPECIFIED MEDICATION [Concomitant]
  17. UNSPECIFIED MEDICATION [Concomitant]

REACTIONS (1)
  - DEAFNESS [None]
